FAERS Safety Report 5964543-1 (Version None)
Quarter: 2008Q4

REPORT INFORMATION
  Report Type: 
  Country: None (occurrence: None)
  Receive Date: 20081122
  Receipt Date: 20081122
  Transmission Date: 20090506
  Serious: Yes (Other)
  Sender: FDA-Public Use
  Company Number: None

PATIENT
  Age: 72 Year
  Sex: Female
  Weight: 72.5755 kg

DRUGS (2)
  1. CLINDAMYCIN HCL [Suspect]
     Indication: ANTIBIOTIC PROPHYLAXIS
     Dosage: 4 CAPSULES 1 HR BEFORE DENTAL APPOINTMENT
     Dates: start: 20080718
  2. CIPROFLOXACIN [Concomitant]

REACTIONS (7)
  - ABDOMINAL PAIN [None]
  - ABDOMINAL PAIN UPPER [None]
  - ARTHRITIS [None]
  - DIARRHOEA [None]
  - IMMUNE SYSTEM DISORDER [None]
  - NAUSEA [None]
  - URINARY TRACT INFECTION [None]
